FAERS Safety Report 10142547 (Version 4)
Quarter: 2014Q2

REPORT INFORMATION
  Report Type: Report from Study
  Country: IN (occurrence: IN)
  Receive Date: 20140430
  Receipt Date: 20140516
  Transmission Date: 20141212
  Serious: Yes (Hospitalization, Other)
  Sender: FDA-Public Use
  Company Number: IN-BRISTOL-MYERS SQUIBB COMPANY-15849151

PATIENT
  Age: 46 Year
  Sex: Female
  Weight: 40 kg

DRUGS (67)
  1. STOCRIN CAPS [Suspect]
     Indication: HIV INFECTION
     Dosage: BEDTIME?LAST DOSE:2AUG08
     Route: 048
     Dates: start: 20070309, end: 20111007
  2. VIDEX EC CAPS [Suspect]
     Route: 048
  3. ATAZANAVIR [Suspect]
     Indication: HIV INFECTION
     Dosage: 300MG 09-27DEC^11, 27-30DEC^11.?LAST DOSE:19JUL11?INT:07OCT11?22SEP08-19JUL11 1031D
     Route: 048
     Dates: start: 20080922
  4. LAMIVUDINE + ZIDOVUDINE [Suspect]
     Indication: HIV INFECTION
     Dosage: 1DF-150/300MG?LAST DOSE:02AUG10
     Route: 048
     Dates: start: 20070309, end: 20100802
  5. TENOFOVIR DISOPROXIL FUMARATE [Suspect]
     Indication: HIV INFECTION
     Dosage: EVERYDAY?LAST DOSE:2AUG10?22SEP08-2AUG10 680D
     Route: 048
     Dates: start: 20080922, end: 20100802
  6. TRUVADA [Suspect]
     Indication: HIV INFECTION
     Dosage: 1 DF: 200/300MGLAST DOSE:19JUL11INT:07OCT11DURATION OF THERAPY:343D ON ALTERNATIVE DAYS 10DEC11.
     Route: 048
     Dates: start: 20100811, end: 20111230
  7. RITONAVIR [Suspect]
     Indication: HIV INFECTION
     Dosage: 22SEP08-25MAR10 550D?26MAR10-19JUL11 481D?09-27DEC11?30DEC11-02JAN12?LAST DOSE: 24FEB2012
     Route: 048
     Dates: start: 20100326
  8. LAMIVUDINE [Suspect]
     Indication: HIV INFECTION
     Dosage: 09MAR2007-02AUG2010?11FEB-23FEB2012?24FEB-20MAR2012?20MAR2012-ONG
     Route: 048
     Dates: start: 20120211
  9. ABACAVIR SULFATE [Suspect]
     Dosage: LAST DOSE ON 7OCT2011
     Dates: start: 20080922, end: 20110720
  10. SULFAMETHOXAZOLE 800/TRIMETHOPRIM 160 [Suspect]
     Indication: PROPHYLAXIS
     Dosage: TAB SULFAMETHOXAZOLE 800MG TRIMETHOPRIM 160MG. STOPPED: UNK. RESTARTED: 29JUN11-ONG.
     Route: 048
     Dates: start: 20101129, end: 20111007
  11. AZITHROMYCIN [Suspect]
     Indication: PROPHYLAXIS
     Dosage: 1G/WK FROM 4JUL11?TABLET
     Dates: start: 20110629, end: 20111007
  12. HYDROXYZINE HCL [Concomitant]
     Indication: PRURITUS
     Dosage: TABS?LAST DOSE:03JUN2011 RESTARTED 24-28AG11?RESTARTED:14OCT11,STOPPED AND RESTARTED:09DC11
     Route: 048
     Dates: start: 20110520
  13. AMOROLFINE HCL [Concomitant]
     Indication: ONYCHOMYCOSIS
     Dosage: CREAM LAST DOSE TAKEN-03JUN2011
     Route: 061
     Dates: start: 20110520
  14. VITAMIN B12 [Concomitant]
     Dosage: CAP.?ALSO 7.5MCG?RESTARTED ON 8OCT11-12OCT11
     Dates: start: 20101129, end: 20101201
  15. FERROUS FUMARATE [Concomitant]
     Dosage: INJECTION?RESTARTED ON 8OCT11-12OCT11
     Dates: start: 20101129, end: 20101201
  16. FOLIC ACID [Concomitant]
     Indication: SINUSITIS
     Dosage: 0.5MG 3SEP11?REST:8OCT11-12OCT11?1.1MG 7OCT11-9OCT11 REST:12OCT11-5MG;REST:14OCT11?15JAN-23JAN13
     Dates: start: 20101129, end: 20101201
  17. RIFAMPICIN [Concomitant]
     Indication: PULMONARY TUBERCULOSIS
     Route: 048
     Dates: start: 20110723, end: 20111007
  18. ISONIAZIDE [Concomitant]
     Indication: PULMONARY TUBERCULOSIS
     Route: 048
     Dates: start: 20110621, end: 20111007
  19. PYRAZINAMIDE [Concomitant]
     Indication: PULMONARY TUBERCULOSIS
     Route: 048
     Dates: start: 20110621, end: 20111007
  20. ETHAMBUTOL [Concomitant]
     Indication: PULMONARY TUBERCULOSIS
     Route: 048
     Dates: start: 20110621, end: 20111007
  21. OMEPRAZOLE [Concomitant]
     Indication: PROPHYLAXIS
     Dosage: CAPS?20MG FROM 26AUG11
     Route: 048
     Dates: start: 20110826
  22. PYRIDOXINE HCL [Concomitant]
     Indication: PROPHYLAXIS
     Dosage: 100MG FROM 26AUG11 ?TABLET?RESTARTED ON 9OCT11-11OCT11
     Route: 048
     Dates: start: 20110826, end: 20111007
  23. ESCITALOPRAM [Concomitant]
     Indication: DEPRESSION
     Dates: start: 20110723, end: 20110906
  24. FERRIC AMMONIUM CITRATE [Concomitant]
     Dosage: SYRUP
  25. PARACETAMOL TABS 500 MG [Concomitant]
     Indication: ARTHRALGIA
     Dosage: 09SEP-09SEP11?23SEP-29SEP11;REST:7OCT11?09SEP-10OCT11?28AUG-31AUG12?02JAN-05JAN13
     Dates: start: 20110909
  26. PARACETAMOL TABS 500 MG [Concomitant]
     Indication: HEADACHE
     Dosage: 09SEP-09SEP11?23SEP-29SEP11;REST:7OCT11?09SEP-10OCT11?28AUG-31AUG12?02JAN-05JAN13
     Dates: start: 20110909
  27. PARACETAMOL TABS 500 MG [Concomitant]
     Indication: PYREXIA
     Dosage: 09SEP-09SEP11?23SEP-29SEP11;REST:7OCT11?09SEP-10OCT11?28AUG-31AUG12?02JAN-05JAN13
     Dates: start: 20110909
  28. ESOMEPRAZOLE [Concomitant]
     Indication: PROPHYLAXIS
     Dosage: INJECTION
     Dates: start: 20111007, end: 20111008
  29. ONDANSETRON [Concomitant]
     Indication: SINUSITIS
     Dosage: INJECTION?15JAN-23JAN13?08-13/FEB/2012
     Dates: start: 20111007
  30. ONDANSETRON [Concomitant]
     Indication: PROPHYLAXIS
     Dosage: INJECTION?15JAN-23JAN13?08-13/FEB/2012
     Dates: start: 20111007
  31. AMITRIPTYLINE [Concomitant]
     Indication: NEUROPATHY PERIPHERAL
     Dosage: TABSTOOPED ON 10OCT11 RESTARTED 01NOV11.
     Dates: start: 20111008, end: 20111124
  32. DULOXETINE HCL [Concomitant]
     Indication: NEUROPATHY PERIPHERAL
     Dosage: CAPSULES
  33. SODIUM CHLORIDE [Concomitant]
     Dosage: INJECTION IP 0.9%?2.6GM:02JAN-05JAN13
     Route: 042
     Dates: start: 20111009, end: 20111011
  34. THIAMINE HCL [Concomitant]
     Dates: start: 20111009, end: 20111011
  35. PANTOPRAZOLE [Concomitant]
     Indication: PROPHYLAXIS
     Dates: start: 20111009, end: 20111011
  36. CALCIUM CARBONATE [Concomitant]
     Indication: PRURITUS
     Dosage: TABS
     Dates: start: 20111010, end: 20111101
  37. ZINC [Concomitant]
     Dates: start: 20111010
  38. CLOBETASOL PROPIONATE [Concomitant]
     Indication: PRURITUS
     Dosage: CREAM
     Dates: start: 20111014
  39. DIETHYLCARBAMAZINE [Concomitant]
     Indication: EOSINOPHILIA
     Dates: start: 20111008, end: 20111029
  40. VITAMIN D3 [Concomitant]
     Indication: ANAEMIA
     Dosage: ALSO FROM 11SEP2012,250MG
     Dates: start: 20111010
  41. AMOXICILLIN CAPS [Concomitant]
     Indication: PYREXIA
     Dosage: 23-FEB-12TO 26FEB12
     Dates: start: 20120218, end: 20120222
  42. CEFTRIAXONE [Concomitant]
     Indication: SINUSITIS
     Dosage: 15JAN13-23JAN13
     Dates: start: 20120208, end: 20120209
  43. CEFTRIAXONE [Concomitant]
     Indication: PROPHYLAXIS
     Dosage: 15JAN13-23JAN13
     Dates: start: 20120208, end: 20120209
  44. PANTOPRAZOLE [Concomitant]
     Indication: NAUSEA
     Dosage: 30MAR13-14APR13?TO AVOID GASTRITIS
     Route: 042
     Dates: start: 20120208, end: 20120213
  45. TERBUTALINE SULFATE [Concomitant]
     Indication: COUGH
     Dosage: SYRUP?ALSO FROM 23FEB2012
     Dates: start: 20120208
  46. BROMHEXINE [Concomitant]
     Indication: COUGH
     Dosage: ALSO FROM 23FEB2012
     Dates: start: 20120208
  47. GUAIFENESIN [Concomitant]
     Indication: COUGH
     Dosage: ALSO FROM 23FEB2012
     Dates: start: 20120208
  48. PACKED CELLS [Concomitant]
     Indication: ANAEMIA
     Dosage: 10FEB-11FEB12?09FEB-09FEB-12
     Dates: start: 20120209, end: 20120213
  49. DOXOFYLLINE [Concomitant]
     Indication: COUGH
     Dates: start: 20120208, end: 20120210
  50. PYRIDOXINE [Concomitant]
     Indication: PROPHYLAXIS
     Dates: start: 20120212, end: 20120212
  51. OXETHAZAINE [Concomitant]
     Indication: NAUSEA
     Dates: start: 20120210
  52. ALUMINIUM HYDROXIDE [Concomitant]
     Indication: GASTRITIS
     Dosage: 28AUG12-02SEP12,300MG?13DEC12-18DEC12:200MG?02JAN-07JAN13:200MG
     Dates: start: 20120210
  53. ALUMINIUM HYDROXIDE [Concomitant]
     Indication: ANAEMIA
     Dosage: 28AUG12-02SEP12,300MG?13DEC12-18DEC12:200MG?02JAN-07JAN13:200MG
     Dates: start: 20120210
  54. MAGNESIUM SULFATE [Concomitant]
     Dates: start: 20120210
  55. BENZOCAINE [Concomitant]
     Indication: EAR PAIN
     Dosage: DOSAGE 2%
     Dates: start: 20120212, end: 20120213
  56. RIFABUTIN [Concomitant]
     Indication: PULMONARY TUBERCULOSIS
     Dosage: CAPS
     Dates: start: 20111125
  57. CETIRIZINE [Concomitant]
     Indication: COUGH
     Dosage: 08DEC-10DEC2010?11SEP12,TABS?26JUN13,28JUN13
     Dates: start: 20111208
  58. CETIRIZINE [Concomitant]
     Indication: PRURITUS GENERALISED
     Dosage: 08DEC-10DEC2010?11SEP12,TABS?26JUN13,28JUN13
     Dates: start: 20111208
  59. VITAMIN B6 [Concomitant]
     Indication: NEUROPATHY PERIPHERAL
     Dosage: DOSAGE: 1/2 TABLET
     Dates: start: 20111209, end: 20120117
  60. MILK OF MAGNESIA [Concomitant]
     Indication: CONSTIPATION
     Dates: start: 20130102, end: 20130106
  61. LIQUID PARAFFIN [Concomitant]
     Indication: CONSTIPATION
     Dosage: 1DF:3.75ML/15ML?23FEB12-UNKNOWN
     Dates: start: 20130102, end: 20130106
  62. CYPROHEPTADINE [Concomitant]
     Indication: DECREASED APPETITE
     Dosage: 1DF:2MG/5ML
     Dates: start: 20130102, end: 20130106
  63. GLUCOSE [Concomitant]
  64. CALCIUM PHOSPHATE [Concomitant]
     Dates: start: 20130205
  65. VITAMIN D [Concomitant]
     Dates: start: 20130205
  66. RABEPRAZOLE [Concomitant]
     Indication: SINUSITIS
     Dates: start: 20130115, end: 20130123
  67. IRON TABLETS [Concomitant]
     Indication: SINUSITIS
     Dates: start: 20130115, end: 20130123

REACTIONS (12)
  - Pulmonary tuberculosis [Recovering/Resolving]
  - Extrapulmonary tuberculosis [Recovering/Resolving]
  - Anaemia [Not Recovered/Not Resolved]
  - HIV peripheral neuropathy [Unknown]
  - Lower respiratory tract infection [Recovered/Resolved]
  - Drug hypersensitivity [Recovered/Resolved]
  - Virologic failure [Unknown]
  - Cytomegalovirus chorioretinitis [Not Recovered/Not Resolved]
  - Head injury [Unknown]
  - Vulval cellulitis [Unknown]
  - Subdural haematoma [Unknown]
  - Progressive multifocal leukoencephalopathy [Unknown]
